FAERS Safety Report 21249026 (Version 3)
Quarter: 2022Q3

REPORT INFORMATION
  Report Type: Report from Study
  Country: US (occurrence: US)
  Receive Date: 20220824
  Receipt Date: 20220905
  Transmission Date: 20221027
  Serious: No
  Sender: FDA-Public Use
  Company Number: US-BIOVITRUM-2022US09883

PATIENT
  Sex: Female

DRUGS (2)
  1. KINERET [Suspect]
     Active Substance: ANAKINRA
     Indication: Rheumatoid arthritis
     Dates: start: 202208
  2. KINERET [Suspect]
     Active Substance: ANAKINRA
     Dates: start: 20220809

REACTIONS (4)
  - Pain [Unknown]
  - Injection site erythema [Unknown]
  - Drug ineffective [Unknown]
  - Product dose omission issue [Unknown]
